FAERS Safety Report 7508505-1 (Version None)
Quarter: 2011Q2

REPORT INFORMATION
  Report Type: 
  Country: None (occurrence: None)
  Receive Date: 20110527
  Receipt Date: 20110520
  Transmission Date: 20111010
  Serious: Yes (Other)
  Sender: FDA-Public Use
  Company Number: US-AMGEN-USASP2010003902

PATIENT
  Age: 86 Year
  Sex: Male

DRUGS (2)
  1. NPLATE [Suspect]
     Indication: IDIOPATHIC THROMBOCYTOPENIC PURPURA
     Dosage: 6 A?G/KG, UNK
     Dates: start: 20090914
  2. NPLATE [Suspect]
     Dates: start: 20090914

REACTIONS (9)
  - EMBOLISM [None]
  - MYELODYSPLASTIC SYNDROME [None]
  - MARROW HYPERPLASIA [None]
  - THROMBOSIS [None]
  - CHRONIC MYELOID LEUKAEMIA [None]
  - LEUKOCYTOSIS [None]
  - BIOPSY BONE MARROW ABNORMAL [None]
  - ANAEMIA [None]
  - BONE MARROW RETICULIN FIBROSIS [None]
